FAERS Safety Report 15318524 (Version 1)
Quarter: 2018Q3

REPORT INFORMATION
  Report Type: Spontaneous
  Country: US (occurrence: US)
  Receive Date: 20180825
  Receipt Date: 20180825
  Transmission Date: 20181010
  Serious: No
  Sender: FDA-Public Use
  Company Number: US-JNJFOC-20180811068

PATIENT
  Sex: Male

DRUGS (2)
  1. ZYRTEC [Suspect]
     Active Substance: CETIRIZINE HYDROCHLORIDE
     Route: 048
  2. ZYRTEC [Suspect]
     Active Substance: CETIRIZINE HYDROCHLORIDE
     Indication: URTICARIA
     Route: 048

REACTIONS (4)
  - Product use in unapproved indication [Unknown]
  - Overdose [Unknown]
  - Somnolence [Unknown]
  - Wrong technique in product usage process [Unknown]
